FAERS Safety Report 5062602-1 (Version None)
Quarter: 2006Q3

REPORT INFORMATION
  Report Type: 
  Country: None (occurrence: None)
  Receive Date: 20060725
  Receipt Date: 20060725
  Transmission Date: 20061208
  Serious: Yes (Other)
  Sender: FDA-Public Use
  Company Number: None

PATIENT
  Sex: Female
  Weight: 90.7194 kg

DRUGS (1)
  1. GLIPIZIDE ER TAB 10MG, ANDEX [Suspect]
     Indication: DIABETES MELLITUS
     Dosage: 10 MG DAILY ORAL
     Route: 048
     Dates: start: 20060705, end: 20060722

REACTIONS (4)
  - CHEST DISCOMFORT [None]
  - NAUSEA [None]
  - PHARMACEUTICAL PRODUCT COMPLAINT [None]
  - SWELLING [None]
